FAERS Safety Report 18782000 (Version 1)
Quarter: 2021Q1

REPORT INFORMATION
  Report Type: Spontaneous
  Country: US (occurrence: US)
  Receive Date: 20210125
  Receipt Date: 20210125
  Transmission Date: 20210419
  Serious: No
  Sender: FDA-Public Use
  Company Number: US-ALLERGAN-2014377US

PATIENT
  Sex: Female

DRUGS (7)
  1. RESTASIS [Suspect]
     Active Substance: CYCLOSPORINE
     Indication: DRY EYE
     Dosage: 1 GTT, BID
     Dates: start: 202003, end: 202003
  2. REFRESH PLUS [Concomitant]
     Active Substance: CARBOXYMETHYLCELLULOSE SODIUM
     Dosage: 30 MINUTES TO 1 HOUR AND AT NIGHT TIME
     Route: 047
  3. CALCIUM [Concomitant]
     Active Substance: CALCIUM
  4. SERTRALINE HCL [Concomitant]
     Active Substance: SERTRALINE HYDROCHLORIDE
  5. METOPROLOL. [Concomitant]
     Active Substance: METOPROLOL
  6. ROSUVASTATIN. [Concomitant]
     Active Substance: ROSUVASTATIN
  7. POTASSIUM [Concomitant]
     Active Substance: POTASSIUM

REACTIONS (1)
  - Eye irritation [Recovered/Resolved]
